FAERS Safety Report 8560036-6 (Version None)
Quarter: 2012Q3

REPORT INFORMATION
  Report Type: 
  Country: None (occurrence: None)
  Receive Date: 20120723
  Receipt Date: 20120713
  Transmission Date: 20120928
  Serious: Yes (Hospitalization)
  Sender: FDA-Public Use
  Company Number: USA/GER/12/0025088

PATIENT
  Age: 82 Year
  Sex: Female
  Weight: 61 kg

DRUGS (3)
  1. VENLAFAXINE HCL [Suspect]
     Indication: PSYCHOTIC DISORDER
     Dosage: 75 MG, 1 IN 1 D,  2 MONTHS BEFORE
  2. DONEPEZIL HCL [Suspect]
     Indication: PSYCHOTIC DISORDER
     Dosage: 5 MG, 1 IN 1 D, 2 MONTHS BEFORE
  3. QUETIAPINE FUMARATE [Suspect]
     Indication: PSYCHOTIC DISORDER
     Dosage: 300 MG, 1 IN 1 D, 150 MG, 1 IN 1 D, 2 MONTHS BEFORE

REACTIONS (3)
  - CARDIAC ARREST [None]
  - MOTOR DYSFUNCTION [None]
  - DEPRESSION [None]
